FAERS Safety Report 5008077-X (Version None)
Quarter: 2006Q1

REPORT INFORMATION
  Report Type: 
  Country: None (occurrence: None)
  Receive Date: 20060329
  Receipt Date: 20051216
  Transmission Date: 20060701
  Serious: Yes (Other)
  Sender: FDA-Public Use
  Company Number: A03200504265

PATIENT
  Age: 53 Year
  Sex: Female

DRUGS (3)
  1. AMBIEN [Suspect]
     Indication: SLEEP DISORDER
     Dosage: 12.5 MG 2/WEEK - ORAL
     Route: 048
     Dates: start: 20051201, end: 20051201
  2. PAROXETINE HYDROCHLORIDE [Concomitant]
  3. RISEDRONATE SODIUM [Concomitant]

REACTIONS (3)
  - AMNESIA [None]
  - HALLUCINATION [None]
  - SLEEP WALKING [None]
